FAERS Safety Report 22530046 (Version 1)
Quarter: 2023Q2

REPORT INFORMATION
  Report Type: Spontaneous
  Country: KR (occurrence: KR)
  Receive Date: 20230607
  Receipt Date: 20230607
  Transmission Date: 20230722
  Serious: Yes (Hospitalization)
  Sender: FDA-Public Use
  Company Number: KR-ORGANON-O2305KOR003117

PATIENT
  Age: 66 Year
  Sex: Male
  Weight: 64.6 kg

DRUGS (21)
  1. COZAAR [Suspect]
     Active Substance: LOSARTAN POTASSIUM
     Dosage: 50 MILLIGRAM, 0.5 DAY (Q12H)
     Dates: start: 20190611, end: 20190817
  2. LANSOPRAZOLE [Concomitant]
     Active Substance: LANSOPRAZOLE
     Dosage: 30 MILLIGRAM, QD
     Dates: start: 20180812, end: 201903
  3. UBIDECARENONE [Concomitant]
     Active Substance: UBIDECARENONE
     Dosage: 5 MILLIGRAM, 0.5 DAY (Q12H)
     Dates: start: 20170802, end: 20190817
  4. CLONAZEPAM [Concomitant]
     Active Substance: CLONAZEPAM
     Dosage: 0.5 MILLIGRAM,  0.5 DAY (Q12H)
     Dates: start: 201706, end: 20190817
  5. ALPRAZOLAM [Concomitant]
     Active Substance: ALPRAZOLAM
     Dosage: 0.25 MILLIGRAM, 0.5 DAY (Q12H)
     Dates: start: 20170802, end: 20190817
  6. LINAGLIPTIN [Concomitant]
     Active Substance: LINAGLIPTIN
     Dosage: 5 MILLIGRAM, QD
     Dates: start: 201705, end: 20190817
  7. THIOCTIC ACID TROMETHAMINE [Concomitant]
     Active Substance: THIOCTIC ACID TROMETHAMINE
     Dosage: 480 MILLIGRAM, QD
     Dates: start: 201808, end: 20180816
  8. VALPROATE SODIUM [Concomitant]
     Active Substance: VALPROATE SODIUM
     Dosage: 300 MILLIGRAM, TID
     Dates: start: 20180812, end: 20180828
  9. NIMODIPINE [Concomitant]
     Active Substance: NIMODIPINE
     Dosage: 30 MILLIGRAM, 0.33 DAY (TID)
     Dates: start: 20180812, end: 20190817
  10. METFORMIN HYDROCHLORIDE [Concomitant]
     Active Substance: METFORMIN HYDROCHLORIDE
     Dosage: 500 MILLIGRAM, QD
     Dates: start: 200808, end: 20190817
  11. GLICLAZIDE [Concomitant]
     Active Substance: GLICLAZIDE
     Dosage: 60 MILLIGRAM, QD
     Dates: start: 200808, end: 20190817
  12. PIPERACILLIN SODIUM\TAZOBACTAM SODIUM [Concomitant]
     Active Substance: PIPERACILLIN SODIUM\TAZOBACTAM SODIUM
     Dosage: 4.5 GRAM, TID
     Dates: start: 20180823, end: 20180830
  13. PIPERACILLIN SODIUM\TAZOBACTAM SODIUM [Concomitant]
     Active Substance: PIPERACILLIN SODIUM\TAZOBACTAM SODIUM
     Dosage: 4.5 GRAM, 0.25 DAY (Q6H)
     Dates: start: 20180823
  14. QUETIAPINE FUMARATE [Concomitant]
     Active Substance: QUETIAPINE FUMARATE
     Dosage: 25 MILLIGRAM, QD
     Dates: start: 20180817
  15. FEXOFENADINE HYDROCHLORIDE [Concomitant]
     Active Substance: FEXOFENADINE HYDROCHLORIDE
     Dosage: 180 MILLIGRAM, QD
     Dates: start: 20181203, end: 201901
  16. ACETYLCARNITINE HYDROCHLORIDE, L- [Concomitant]
     Active Substance: ACETYLCARNITINE HYDROCHLORIDE
     Dosage: 500 MILLIGRAM, 0.5 DAY (Q12H)
     Dates: start: 20190107, end: 20190817
  17. ACETAMINOPHEN [Concomitant]
     Active Substance: ACETAMINOPHEN
     Dosage: 650 MILLIGRAM, QD
     Dates: start: 20190107, end: 20190817
  18. TALNIFLUMATE [Concomitant]
     Active Substance: TALNIFLUMATE
     Dosage: 370 MILLIGRAM, QD
     Dates: start: 20190107, end: 20190817
  19. PREGABALIN [Concomitant]
     Active Substance: PREGABALIN
     Dosage: 75 MILLIGRAM, 0.5 DAY (Q12H)
     Dates: start: 20190611, end: 20190817
  20. LEVOFLOXACIN [Concomitant]
     Active Substance: LEVOFLOXACIN
     Dosage: 750 MILLIGRAM, 0.5 DAY (Q12H)
     Dates: start: 20190819
  21. PANTOPRAZOLE SODIUM [Concomitant]
     Active Substance: PANTOPRAZOLE SODIUM
     Dosage: 40 MILLIGRAM, 0.5 DAY (Q12H)
     Dates: start: 20190818

REACTIONS (1)
  - Pneumonitis aspiration [Recovering/Resolving]

NARRATIVE: CASE EVENT DATE: 20190818
